FAERS Safety Report 6808766-8 (Version None)
Quarter: 2010Q2

REPORT INFORMATION
  Report Type: 
  Country: None (occurrence: None)
  Receive Date: 20100630
  Receipt Date: 20090921
  Transmission Date: 20101027
  Serious: No
  Sender: FDA-Public Use
  Company Number: US-PFIZER INC-2009254682

PATIENT
  Sex: Male

DRUGS (5)
  1. TIKOSYN [Suspect]
  2. CLARITIN [Concomitant]
  3. ZYRTEC [Concomitant]
  4. ALLEGRA [Concomitant]
  5. BENADRYL [Concomitant]

REACTIONS (1)
  - HYPERSENSITIVITY [None]
